FAERS Safety Report 25802239 (Version 1)
Quarter: 2025Q3

REPORT INFORMATION
  Report Type: Report from Study
  Country: US (occurrence: US)
  Receive Date: 20250915
  Receipt Date: 20250915
  Transmission Date: 20251021
  Serious: Yes (Hospitalization)
  Sender: TAKEDA
  Company Number: US-TAKEDA-2025TUS029696

PATIENT
  Sex: Male
  Weight: 110 kg

DRUGS (17)
  1. HUMAN IMMUNOGLOBULIN G [Suspect]
     Active Substance: HUMAN IMMUNOGLOBULIN G
     Indication: Chronic inflammatory demyelinating polyradiculoneuropathy
  2. COENZYME Q10 [Concomitant]
     Active Substance: DIETARY SUPPLEMENT\UBIDECARENONE
  3. LIPITOR [Concomitant]
     Active Substance: ATORVASTATIN CALCIUM
  4. TYLENOL EXTRA STRENGTH [Concomitant]
     Active Substance: ACETAMINOPHEN
  5. OLIVE OIL [Concomitant]
     Active Substance: OLIVE OIL
  6. LASIX [Concomitant]
     Active Substance: FUROSEMIDE
  7. ASPIRIN [Concomitant]
     Active Substance: ASPIRIN
  8. FLUOXETINE HYDROCHLORIDE [Concomitant]
     Active Substance: FLUOXETINE HYDROCHLORIDE
  9. VITAMIN B [Concomitant]
     Active Substance: VITAMIN B
  10. AMIODARONE HYDROCHLORIDE [Concomitant]
     Active Substance: AMIODARONE HYDROCHLORIDE
  11. VITAMIN D3 [Concomitant]
     Active Substance: CHOLECALCIFEROL
  12. HERBALS\TURMERIC [Concomitant]
     Active Substance: HERBALS\TURMERIC
  13. FLAXSEED [Concomitant]
     Active Substance: FLAX SEED
  14. FARXIGA [Concomitant]
     Active Substance: DAPAGLIFLOZIN PROPANEDIOL
  15. MAGNESIUM [Concomitant]
     Active Substance: MAGNESIUM
  16. GARLIC [Concomitant]
     Active Substance: GARLIC
  17. COREG [Concomitant]
     Active Substance: CARVEDILOL

REACTIONS (5)
  - Confusional state [Unknown]
  - Carbon dioxide increased [Unknown]
  - Lethargy [Unknown]
  - Blood pressure abnormal [Unknown]
  - Incorrect drug administration rate [Unknown]
